FAERS Safety Report 9045110 (Version 2)
Quarter: 2013Q1

REPORT INFORMATION
  Report Type: Spontaneous
  Country: US (occurrence: US)
  Receive Date: 20130130
  Receipt Date: 20130211
  Transmission Date: 20140127
  Serious: Yes (Other)
  Sender: FDA-Public Use
  Company Number: CHPA2013US001679

PATIENT
  Age: 79 Year
  Sex: Male

DRUGS (5)
  1. BUCKLEY^S COUGH MIXTURE [Suspect]
     Indication: NASOPHARYNGITIS
     Dosage: UNK, UNK
     Route: 048
  2. BUCKLEY^S CHEST CONGESTION [Suspect]
     Indication: NASOPHARYNGITIS
     Dosage: UNK, UNK
     Route: 048
  3. GLUTHIONE [Concomitant]
     Indication: CATARACT
     Route: 048
  4. UMCA [Concomitant]
  5. ELDERBERRY//SAMBUCUS NIGRA [Concomitant]

REACTIONS (10)
  - Feeling abnormal [Unknown]
  - Nasopharyngitis [Recovered/Resolved]
  - Sneezing [Recovered/Resolved]
  - Oropharyngeal pain [Recovering/Resolving]
  - Sinus congestion [Recovering/Resolving]
  - Upper-airway cough syndrome [Unknown]
  - Respiratory tract congestion [Recovering/Resolving]
  - Cough [Unknown]
  - Incorrect dose administered [Unknown]
  - Wrong technique in drug usage process [Unknown]
